FAERS Safety Report 9216996 (Version 3)
Quarter: 2013Q2

REPORT INFORMATION
  Report Type: Spontaneous
  Country: DE (occurrence: None)
  Receive Date: 20130404
  Receipt Date: 20130619
  Transmission Date: 20140414
  Serious: Yes (Hospitalization)
  Sender: FDA-Public Use
  Company Number: ACO_35247_2013

PATIENT
  Age: 67 Year
  Sex: Male

DRUGS (9)
  1. FAMPYRA (DALFAMPRIDINE) TABLET, 10MG [Suspect]
     Indication: MULTIPLE SCLEROSIS
     Route: 048
     Dates: start: 20130130, end: 20130218
  2. ASA (ASA) [Concomitant]
  3. VITAMIN B12 (CYANOCOBALAMIN) [Concomitant]
  4. VITAMIN D (VITAMIN D) [Concomitant]
  5. SIMVASTATIN (SIMVASTATIN) [Concomitant]
  6. PREGABALIN (PREGABALIN) [Concomitant]
  7. NOVALGINA (METAMIZOLE SODIUM) [Concomitant]
  8. RIVAROXABAN (RIVAROXABAN) [Concomitant]
  9. AMIODARONE (AMIODARONE) [Concomitant]

REACTIONS (22)
  - Atrial fibrillation [None]
  - Tachyarrhythmia [None]
  - Chest discomfort [None]
  - Cardiac murmur [None]
  - Peripheral coldness [None]
  - Pulse absent [None]
  - Bundle branch block left [None]
  - Electrocardiogram T wave inversion [None]
  - Electrocardiogram ST segment elevation [None]
  - Diastolic dysfunction [None]
  - Left atrial dilatation [None]
  - Mitral valve incompetence [None]
  - Tricuspid valve incompetence [None]
  - Polyneuropathy [None]
  - Cough [None]
  - Chest discomfort [None]
  - Vertigo [None]
  - Nausea [None]
  - Bradycardia [None]
  - Electrocardiogram QT prolonged [None]
  - Pyrexia [None]
  - Sputum discoloured [None]
